FAERS Safety Report 21026479 (Version 2)
Quarter: 2022Q2

REPORT INFORMATION
  Report Type: Other
  Country: US (occurrence: None)
  Receive Date: 20220630
  Receipt Date: 20220630
  Transmission Date: 20220720
  Serious: No
  Sender: FDA-Public Use
  Company Number: US-ROCHE-3128735

PATIENT
  Sex: Female

DRUGS (1)
  1. OCREVUS [Suspect]
     Active Substance: OCRELIZUMAB
     Indication: Multiple sclerosis
     Dosage: YES?DATE OF TREATMENT: 02/MAR/2018, 26/MAY/2021, 20/MAY/2022
     Route: 065
     Dates: start: 20170816

REACTIONS (1)
  - COVID-19 [Not Recovered/Not Resolved]
